FAERS Safety Report 7024338-7 (Version None)
Quarter: 2010Q4

REPORT INFORMATION
  Report Type: 
  Country: None (occurrence: None)
  Receive Date: 20101001
  Receipt Date: 20100924
  Transmission Date: 20110411
  Serious: Yes (Other)
  Sender: FDA-Public Use
  Company Number: BR-PFIZER INC-2010121639

PATIENT
  Age: 65 Year
  Sex: Female

DRUGS (1)
  1. CELEBRA [Suspect]
     Indication: LOWER LIMB FRACTURE
     Dosage: 200 MG, 2X/DAY, 2 TABLETS PER DAY
     Route: 048

REACTIONS (1)
  - BLOOD PRESSURE FLUCTUATION [None]
